FAERS Safety Report 7440438-1 (Version None)
Quarter: 2011Q2

REPORT INFORMATION
  Report Type: 
  Country: None (occurrence: None)
  Receive Date: 20110427
  Receipt Date: 20110421
  Transmission Date: 20111010
  Serious: Yes (Hospitalization)
  Sender: FDA-Public Use
  Company Number: US-GILEAD-2011-0038146

PATIENT
  Age: 53 Year
  Sex: Female

DRUGS (3)
  1. REMODULIN [Concomitant]
  2. REVATIO [Concomitant]
  3. LETAIRIS [Suspect]
     Indication: PULMONARY HYPERTENSION
     Route: 048
     Dates: start: 20110326, end: 20110401

REACTIONS (7)
  - HEART RATE INCREASED [None]
  - DYSPNOEA [None]
  - HYPOTENSION [None]
  - DIZZINESS [None]
  - HEADACHE [None]
  - OEDEMA [None]
  - OROPHARYNGEAL PAIN [None]
